FAERS Safety Report 7130709-0 (Version None)
Quarter: 2010Q4

REPORT INFORMATION
  Report Type: 
  Country: None (occurrence: None)
  Receive Date: 20101201
  Receipt Date: 20101119
  Transmission Date: 20110411
  Serious: Yes (Other)
  Sender: FDA-Public Use
  Company Number: US-ROCHE-432356

PATIENT
  Sex: Male
  Weight: 79.4 kg

DRUGS (4)
  1. ACCUTANE [Suspect]
     Indication: ACNE
     Route: 048
     Dates: start: 19960106, end: 19970625
  2. TYLENOL [Concomitant]
     Indication: HEADACHE
  3. GENERIC DRUGS [Concomitant]
     Dosage: UNSPECIFIED OVER-THE-COUNTER MEDICATION TAKEN FOR COLDS AND/OR FLU.
  4. ANTIBIOTIC NOS [Concomitant]

REACTIONS (15)
  - ACROCHORDON [None]
  - ANAEMIA [None]
  - COLITIS [None]
  - COLITIS ULCERATIVE [None]
  - CROHN'S DISEASE [None]
  - DEPRESSION [None]
  - DRY SKIN [None]
  - GASTROOESOPHAGEAL REFLUX DISEASE [None]
  - INFLAMMATORY BOWEL DISEASE [None]
  - INTESTINAL HAEMORRHAGE [None]
  - INTESTINAL OBSTRUCTION [None]
  - IRRITABLE BOWEL SYNDROME [None]
  - LIP DRY [None]
  - MELANOCYTIC NAEVUS [None]
  - SKIN PAPILLOMA [None]
